FAERS Safety Report 10749203 (Version 1)
Quarter: 2015Q1

REPORT INFORMATION
  Report Type: Spontaneous
  Country: US (occurrence: None)
  Receive Date: 20150120
  Receipt Date: 20150120
  Transmission Date: 20150721
  Serious: No
  Sender: FDA-Public Use
  Company Number: AEGR000758

PATIENT
  Age: 33 Year
  Sex: Female
  Weight: 50.3 kg

DRUGS (6)
  1. OXYCODONE (OXYCODONE HYDROCHLORIDE) [Concomitant]
  2. ATENOLOL (ATENOLOL) [Concomitant]
     Active Substance: ATENOLOL
  3. CRESTOR [Concomitant]
     Active Substance: ROSUVASTATIN CALCIUM
  4. IBUPROFEN (IBUPROFEN) [Concomitant]
     Active Substance: IBUPROFEN
  5. JUXTAPID [Suspect]
     Active Substance: LOMITAPIDE MESYLATE
     Indication: PRODUCT USED FOR UNKNOWN INDICATION
     Dosage: BEDTIME
     Route: 048
     Dates: start: 20140912, end: 201409
  6. VITAMIN E (TOCOPHERYL ACETATE) [Concomitant]

REACTIONS (9)
  - Urinary tract infection [None]
  - Pain [None]
  - Ear discomfort [None]
  - Chromaturia [None]
  - Product used for unknown indication [None]
  - Dry mouth [None]
  - Headache [None]
  - Pyrexia [None]
  - Dizziness [None]

NARRATIVE: CASE EVENT DATE: 201409
